FAERS Safety Report 6544594-9 (Version None)
Quarter: 2010Q1

REPORT INFORMATION
  Report Type: 
  Country: None (occurrence: None)
  Receive Date: 20100121
  Receipt Date: 20100113
  Transmission Date: 20100710
  Serious: Yes (Other)
  Sender: FDA-Public Use
  Company Number: BE-JNJFOC-20091202986

PATIENT
  Sex: Female
  Weight: 65 kg

DRUGS (1)
  1. STELERA [Suspect]
     Indication: PSORIASIS
     Route: 058

REACTIONS (4)
  - HYPERSENSITIVITY [None]
  - MUSCLE SPASMS [None]
  - PSORIASIS [None]
  - RASH [None]
